FAERS Safety Report 16841721 (Version 1)
Quarter: 2019Q3

REPORT INFORMATION
  Report Type: Spontaneous
  Country: FR (occurrence: FR)
  Receive Date: 20190923
  Receipt Date: 20190923
  Transmission Date: 20191005
  Serious: Yes (Hospitalization)
  Sender: FDA-Public Use
  Company Number: PHHY2019FR215386

PATIENT
  Age: 44 Year
  Sex: Male

DRUGS (6)
  1. CETIRIZINE [Suspect]
     Active Substance: CETIRIZINE HYDROCHLORIDE
     Indication: PSYCHOTIC DISORDER
     Dosage: 30 MG, TOTAL
     Route: 048
     Dates: start: 20190827
  2. OLANZAPINE. [Suspect]
     Active Substance: OLANZAPINE
     Indication: PSYCHOTIC DISORDER
     Dosage: 30 MG, UNK (TOTAL)
     Route: 048
     Dates: start: 20190827
  3. VENLAFAXINE [Suspect]
     Active Substance: VENLAFAXINE HYDROCHLORIDE
     Indication: PSYCHOTIC DISORDER
     Dosage: 2 DF, UNK (TOTAL)
     Route: 048
     Dates: start: 20190827
  4. LORMETAZEPAM [Suspect]
     Active Substance: LORMETAZEPAM
     Indication: PSYCHOTIC DISORDER
     Dosage: 1 DF, UNK (TOTAL)
     Route: 048
     Dates: start: 20190827
  5. TRANXENE [Suspect]
     Active Substance: CLORAZEPATE DIPOTASSIUM
     Indication: PSYCHOTIC DISORDER
     Dosage: 60 MG, UNK (TOTAL)
     Route: 048
     Dates: start: 20190827
  6. NOZINAN [Suspect]
     Active Substance: LEVOMEPROMAZINE
     Indication: PSYCHOTIC DISORDER
     Dosage: 125 MG, UNK  (TOTAL)
     Route: 048
     Dates: start: 20190827

REACTIONS (4)
  - Medication error [Recovered/Resolved]
  - Inappropriate schedule of product administration [Recovered/Resolved]
  - Somnolence [Recovered/Resolved]
  - Overdose [Recovered/Resolved]

NARRATIVE: CASE EVENT DATE: 20190827
